FAERS Safety Report 6137323-4 (Version None)
Quarter: 2009Q1

REPORT INFORMATION
  Report Type: 
  Country: None (occurrence: None)
  Receive Date: 20090325
  Receipt Date: 20081030
  Transmission Date: 20090719
  Serious: Yes (Hospitalization)
  Sender: FDA-Public Use
  Company Number: ACETADOTE_047

PATIENT
  Age: 47 Year
  Sex: Female

DRUGS (1)
  1. ACETADOTE [Suspect]
     Indication: OVERDOSE
     Dosage: IV INJECTION
     Route: 042
     Dates: start: 20081030

REACTIONS (1)
  - INFUSION SITE EXTRAVASATION [None]
